FAERS Safety Report 5175858-1 (Version None)
Quarter: 2006Q4

REPORT INFORMATION
  Report Type: 
  Country: None (occurrence: None)
  Receive Date: 20061215
  Receipt Date: 20061204
  Transmission Date: 20070319
  Serious: Yes (Hospitalization)
  Sender: FDA-Public Use
  Company Number: PHRM2006FR03225

PATIENT
  Age: 61 Year
  Sex: Male
  Weight: 67 kg

DRUGS (11)
  1. SEVREDOL [Concomitant]
     Dosage: UNK, PRN
  2. DAFALGAN [Concomitant]
     Dosage: UNK, PRN
  3. NEORAL [Suspect]
     Indication: LIVER TRANSPLANT
     Dosage: 175 MG, BID
     Route: 048
     Dates: start: 20060914
  4. OMIX [Suspect]
     Dosage: 1 DF DAILY
     Route: 048
  5. CELLCEPT [Suspect]
     Indication: LIVER TRANSPLANT
     Dosage: 500 MG, BID
     Route: 048
     Dates: start: 20060914
  6. VFEND [Suspect]
     Indication: ASPERGILLOSIS
     Dosage: 200 MG, BID
     Route: 048
     Dates: start: 20060914, end: 20061018
  7. ROVALCYTE [Interacting]
     Dosage: 450 MG PER DAY
     Route: 048
     Dates: start: 20060914
  8. CORTANCYL [Concomitant]
     Dosage: 10 MG DAILY
     Route: 048
  9. LEVOTHYROXINE SODIUM [Concomitant]
  10. LASIX [Concomitant]
  11. INSULIN [Concomitant]

REACTIONS (11)
  - ASCITES [None]
  - ASPERGILLOSIS [None]
  - BLOOD BILIRUBIN INCREASED [None]
  - BLOOD CREATININE INCREASED [None]
  - COAGULATION FACTOR V LEVEL DECREASED [None]
  - CREATININE RENAL CLEARANCE DECREASED [None]
  - DRUG INTERACTION [None]
  - DRUG LEVEL ABOVE THERAPEUTIC [None]
  - ENCEPHALOPATHY [None]
  - GAMMA-GLUTAMYLTRANSFERASE INCREASED [None]
  - PROTHROMBIN LEVEL DECREASED [None]
